FAERS Safety Report 8013030-8 (Version None)
Quarter: 2011Q4

REPORT INFORMATION
  Report Type: 
  Country: None (occurrence: None)
  Receive Date: 20111223
  Receipt Date: 20111223
  Transmission Date: 20120403
  Serious: Yes (Life-Threatening)
  Sender: FDA-Public Use
  Company Number: None

PATIENT
  Age: 53 Year
  Sex: Male
  Weight: 60.1 kg

DRUGS (1)
  1. GENTAMICIN [Suspect]
     Indication: INFECTION
     Dosage: 70 MG BID IV
     Route: 042
     Dates: start: 20111128, end: 20111130

REACTIONS (3)
  - RENAL FAILURE ACUTE [None]
  - RENAL TUBULAR NECROSIS [None]
  - TOXICITY TO VARIOUS AGENTS [None]
